FAERS Safety Report 6265175-0 (Version None)
Quarter: 2009Q3

REPORT INFORMATION
  Report Type: 
  Country: None (occurrence: None)
  Receive Date: 20090709
  Receipt Date: 20090709
  Transmission Date: 20100115
  Serious: Yes (Other)
  Sender: FDA-Public Use
  Company Number: None

PATIENT
  Sex: Female
  Weight: 52.1637 kg

DRUGS (1)
  1. PROVIGIL [Suspect]
     Dosage: ONCE
     Dates: start: 20090629

REACTIONS (1)
  - FAECAL INCONTINENCE [None]
